FAERS Safety Report 9079796 (Version 1)
Quarter: 2013Q1

REPORT INFORMATION
  Report Type: Spontaneous
  Country: GB (occurrence: GB)
  Receive Date: 20130215
  Receipt Date: 20130215
  Transmission Date: 20140127
  Serious: Yes (Other)
  Sender: FDA-Public Use
  Company Number: GB-GLAXOSMITHKLINE-B0865763A

PATIENT
  Age: 30 Year
  Sex: Female

DRUGS (2)
  1. PAROXETINE [Suspect]
     Indication: MAJOR DEPRESSION
     Route: 048
  2. OLANZAPINE [Concomitant]

REACTIONS (1)
  - Abortion spontaneous [Unknown]
